FAERS Safety Report 25478571 (Version 1)
Quarter: 2025Q2

REPORT INFORMATION
  Report Type: Spontaneous
  Country: US (occurrence: US)
  Receive Date: 20250625
  Receipt Date: 20250625
  Transmission Date: 20250717
  Serious: Yes (Hospitalization)
  Sender: SANOFI AVENTIS
  Company Number: US-SA-2025SA177882

PATIENT
  Sex: Female

DRUGS (14)
  1. DUPIXENT [Suspect]
     Active Substance: DUPILUMAB
     Indication: Emphysema
     Dosage: 300 MG, QOW
     Route: 058
  2. HYDROCODONE [Concomitant]
     Active Substance: HYDROCODONE
  3. GLIPIZIDE [Concomitant]
     Active Substance: GLIPIZIDE
  4. BUDESONIDE [Concomitant]
     Active Substance: BUDESONIDE
  5. LISINOPRIL [Concomitant]
     Active Substance: LISINOPRIL
  6. NOVOLIN R [Concomitant]
     Active Substance: INSULIN HUMAN
  7. TOUJEO [Concomitant]
     Active Substance: INSULIN GLARGINE
  8. ASPIRIN [Concomitant]
     Active Substance: ASPIRIN
  9. ATORVASTATIN [Concomitant]
     Active Substance: ATORVASTATIN
  10. COENZYME Q10 [Concomitant]
     Active Substance: DIETARY SUPPLEMENT\UBIDECARENONE
  11. LEVOTHYROXINE\LIOTHYRONINE [Concomitant]
     Active Substance: LEVOTHYROXINE\LIOTHYRONINE
  12. PREDNISONE [Concomitant]
     Active Substance: PREDNISONE
  13. IPRATROPIUM [Concomitant]
     Active Substance: IPRATROPIUM
  14. BREZTRI AEROSPHERE [BUDESONIDE;FORMOTEROL FUMARATE DIHYDRATE;GLYCOPYRR [Concomitant]

REACTIONS (4)
  - Upper limb fracture [Unknown]
  - Illness [Unknown]
  - Pain [Unknown]
  - Product use in unapproved indication [Unknown]
